FAERS Safety Report 10581518 (Version 1)
Quarter: 2014Q4

REPORT INFORMATION
  Report Type: Spontaneous
  Country: IT (occurrence: None)
  Receive Date: 20141110
  Receipt Date: 20141110
  Transmission Date: 20150529
  Serious: Yes (Death, Other)
  Sender: FDA-Public Use
  Company Number: 2014STPI000618

PATIENT
  Age: 34 Year
  Sex: Female

DRUGS (12)
  1. RANITIDINE [Concomitant]
     Active Substance: RANITIDINE\RANITIDINE HYDROCHLORIDE
  2. TEVAGRASTIM [Suspect]
     Active Substance: FILGRASTIM
     Indication: WHITE BLOOD CELL COUNT DECREASED
     Dates: start: 20140710, end: 20140712
  3. ZOFRON [Suspect]
     Active Substance: ONDANSETRON
     Indication: PROPHYLAXIS OF NAUSEA AND VOMITING
  4. MESNA DELTA FARMA (MESNA) [Suspect]
     Active Substance: MESNA
     Indication: PRODUCT USED FOR UNKNOWN INDICATION
     Dates: start: 20140702
  5. EMEND [Suspect]
     Active Substance: APREPITANT
     Indication: PROPHYLAXIS OF NAUSEA AND VOMITING
     Dates: start: 20140702
  6. PREDNISOLONE (PREDNISOLONE SODIUM PHOSPHATE) [Concomitant]
  7. ONDASEPROL [Suspect]
     Active Substance: ONDANSETRON HYDROCHLORIDE
     Indication: PRODUCT USED FOR UNKNOWN INDICATION
  8. ENDOXAN (CYCLOPHOSPHAMIDE) [Suspect]
     Active Substance: CYCLOPHOSPHAMIDE
     Indication: HODGKIN^S DISEASE
     Route: 042
     Dates: start: 20140702
  9. MATULANE [Suspect]
     Active Substance: PROCARBAZINE HYDROCHLORIDE
     Indication: HODGKIN^S DISEASE
     Dates: start: 20140702
  10. ADRIABLASTINA [Suspect]
     Active Substance: DOXORUBICIN
     Indication: HODGKIN^S DISEASE
     Dates: start: 20140702
  11. ETOPOSIDE (ETOPOSIDE PHOSPHATE) [Suspect]
     Active Substance: ETOPOSIDE
     Indication: HODGKIN^S DISEASE
     Route: 042
     Dates: start: 20140702
  12. ARANESP [Suspect]
     Active Substance: DARBEPOETIN ALFA
     Indication: PRODUCT USED FOR UNKNOWN INDICATION

REACTIONS (8)
  - Pyrexia [None]
  - Vomiting [None]
  - Malaise [None]
  - Myocardial ischaemia [None]
  - Aspiration [None]
  - Neutropenia [None]
  - Tachycardia [None]
  - Cardiac arrest [None]

NARRATIVE: CASE EVENT DATE: 20140709
